FAERS Safety Report 9287112 (Version 2)
Quarter: 2013Q2

REPORT INFORMATION
  Report Type: Spontaneous
  Country: US (occurrence: US)
  Receive Date: 20130513
  Receipt Date: 20130605
  Transmission Date: 20140414
  Serious: Yes (Hospitalization)
  Sender: FDA-Public Use
  Company Number: US-PFIZER INC-2013132297

PATIENT
  Age: 54 Year
  Sex: Female
  Weight: 90.7 kg

DRUGS (8)
  1. CHANTIX [Suspect]
     Indication: SMOKING CESSATION THERAPY
     Dosage: 0.5 MG, 1X/DAY
     Route: 048
     Dates: start: 2012, end: 2013
  2. OXYCODONE [Concomitant]
     Indication: PAIN
     Dosage: 60 MG, 4X/DAY
  3. MORPHINE [Concomitant]
     Indication: PAIN
     Dosage: 30 MG, 2X/DAY
  4. PLAVIX [Concomitant]
     Dosage: UNK
  5. SIMVASTATIN [Concomitant]
     Dosage: UNK
  6. IMDUR [Concomitant]
     Dosage: 30 MG, UNK
  7. SOMA [Concomitant]
     Indication: MUSCLE RELAXANT THERAPY
     Dosage: UNK
  8. IPRATROPIUM/ALBUTEROL [Concomitant]
     Indication: CHRONIC OBSTRUCTIVE PULMONARY DISEASE
     Dosage: UNK
     Route: 055

REACTIONS (5)
  - Viral infection [Unknown]
  - Malaise [Unknown]
  - Vomiting [Unknown]
  - Diarrhoea [Unknown]
  - Blood cholesterol increased [Unknown]
